FAERS Safety Report 5590019-X (Version None)
Quarter: 2008Q1

REPORT INFORMATION
  Report Type: 
  Country: None (occurrence: None)
  Receive Date: 20080114
  Receipt Date: 20070110
  Transmission Date: 20080703
  Serious: No
  Sender: FDA-Public Use
  Company Number: US-ABBOTT-06P-163-0354172-00

PATIENT
  Sex: Male
  Weight: 8.626 kg

DRUGS (2)
  1. OMNICEF [Suspect]
     Indication: PNEUMONIA
     Route: 048
     Dates: start: 20061109, end: 20061119
  2. ALBUTEROL [Concomitant]
     Indication: DYSPNOEA
     Route: 048
     Dates: start: 20061001

REACTIONS (1)
  - FAECES DISCOLOURED [None]
